FAERS Safety Report 19942495 (Version 1)
Quarter: 2021Q4

REPORT INFORMATION
  Report Type: Report from Study
  Country: US (occurrence: US)
  Receive Date: 20211012
  Receipt Date: 20211012
  Transmission Date: 20220303
  Serious: No
  Sender: FDA-Public Use
  Company Number: US-NOVARTISTESTPH-NVSC2021US232695

PATIENT
  Age: 66 Year
  Sex: Male

DRUGS (1)
  1. ENTRESTO [Suspect]
     Active Substance: SACUBITRIL\VALSARTAN
     Indication: Product used for unknown indication
     Dosage: 1 DF, BID
     Route: 048
     Dates: start: 20210803

REACTIONS (5)
  - Eye swelling [Unknown]
  - Goitre [Unknown]
  - Dyspnoea [Unknown]
  - Lip swelling [Unknown]
  - Magnetic resonance imaging [Unknown]

NARRATIVE: CASE EVENT DATE: 20210822
